FAERS Safety Report 9838820 (Version 2)
Quarter: 2014Q2

REPORT INFORMATION
  Report Type: Spontaneous
  Country: US (occurrence: SE)
  Receive Date: 20140123
  Receipt Date: 20140401
  Transmission Date: 20141212
  Serious: Yes (Other)
  Sender: FDA-Public Use
  Company Number: SE-FRI-1000052957

PATIENT
  Age: 67 Year
  Sex: Female

DRUGS (16)
  1. ROFLUMILAST [Suspect]
     Indication: CHRONIC OBSTRUCTIVE PULMONARY DISEASE
     Dosage: 500 MCG
     Route: 048
     Dates: start: 20120824, end: 20131204
  2. CANODERM [Concomitant]
  3. OVESTERIN [Concomitant]
  4. ALVEDON NOVUM [Concomitant]
  5. NASONEX [Concomitant]
     Route: 045
  6. ONBREZ [Concomitant]
  7. SYMBICORT FORTE [Concomitant]
     Dosage: 320/9 MCG
  8. SPIRIVA [Concomitant]
  9. SINGULAIR [Concomitant]
  10. TAVEGYL [Concomitant]
  11. DESLORATADIN [Concomitant]
  12. EPIPEN [Concomitant]
  13. BETAPRED [Concomitant]
  14. IMOVANE [Concomitant]
  15. BRICANYL [Concomitant]
  16. ACETYLCYSTEIN [Concomitant]

REACTIONS (1)
  - Gynaecomastia [Recovering/Resolving]
